FAERS Safety Report 12243297 (Version 1)
Quarter: 2016Q2

REPORT INFORMATION
  Report Type: Spontaneous
  Country: US (occurrence: US)
  Receive Date: 20160406
  Receipt Date: 20160406
  Transmission Date: 20160815
  Serious: No
  Sender: FDA-Public Use
  Company Number: US-SA-2015SA174509

PATIENT
  Age: 87 Year
  Sex: Male

DRUGS (2)
  1. ALLEGRA-D 24 HOUR [Suspect]
     Active Substance: FEXOFENADINE HYDROCHLORIDE\PSEUDOEPHEDRINE HYDROCHLORIDE
     Indication: HEAD DISCOMFORT
     Dosage: DOSE AND DAILY DOSE: 180/240 MG DAILY
     Route: 048
     Dates: start: 20151026
  2. ALLEGRA-D 24 HOUR [Suspect]
     Active Substance: FEXOFENADINE HYDROCHLORIDE\PSEUDOEPHEDRINE HYDROCHLORIDE
     Indication: THROAT IRRITATION
     Dosage: DOSE AND DAILY DOSE: 180/240 MG DAILY
     Route: 048
     Dates: start: 20151026

REACTIONS (2)
  - Headache [Not Recovered/Not Resolved]
  - Drug effect incomplete [Unknown]
